FAERS Safety Report 10777301 (Version 1)
Quarter: 2015Q1

REPORT INFORMATION
  Report Type: Spontaneous
  Country: US (occurrence: US)
  Receive Date: 20150209
  Receipt Date: 20150209
  Transmission Date: 20150721
  Serious: No
  Sender: FDA-Public Use
  Company Number: US-RECKITT BENCKISER PHARMACEUTICAL, INC-RB-64915-2014

PATIENT

DRUGS (1)
  1. BUPRENORPHINE UNSPECIFIED [Suspect]
     Active Substance: BUPRENORPHINE
     Indication: PAIN
     Dosage: DOSING DETAILS UNKNOWN
     Route: 060
     Dates: start: 201401

REACTIONS (1)
  - Off label use [Not Recovered/Not Resolved]

NARRATIVE: CASE EVENT DATE: 201401
